FAERS Safety Report 20794801 (Version 1)
Quarter: 2022Q2

REPORT INFORMATION
  Report Type: Report from Study
  Country: US (occurrence: US)
  Receive Date: 20220506
  Receipt Date: 20220506
  Transmission Date: 20220721
  Serious: Yes (Other)
  Sender: FDA-Public Use
  Company Number: US-MYLANLABS-2022M1033257

PATIENT
  Age: 14 Month
  Sex: Male

DRUGS (12)
  1. LIDOCAINE [Suspect]
     Active Substance: LIDOCAINE
     Indication: Long QT syndrome
     Dosage: DOSE: 60 MICROG/KG/MINUTE
     Route: 042
  2. LIDOCAINE [Suspect]
     Active Substance: LIDOCAINE
     Indication: Ventricular fibrillation
     Dosage: UNK (DOSE DECREASED)
     Route: 042
  3. LIDOCAINE [Suspect]
     Active Substance: LIDOCAINE
     Indication: Ventricular tachycardia
  4. LIDOCAINE [Suspect]
     Active Substance: LIDOCAINE
     Indication: Torsade de pointes
  5. FLECAINIDE [Concomitant]
     Active Substance: FLECAINIDE
     Indication: Long QT syndrome
     Dosage: UNK
     Route: 065
  6. FLECAINIDE [Concomitant]
     Active Substance: FLECAINIDE
     Indication: Torsade de pointes
  7. MEXILETINE [Concomitant]
     Active Substance: MEXILETINE
     Indication: Long QT syndrome
     Dosage: UNK
     Route: 065
  8. MEXILETINE [Concomitant]
     Active Substance: MEXILETINE
     Indication: Torsade de pointes
  9. DILTIAZEM [Concomitant]
     Active Substance: DILTIAZEM
     Indication: Long QT syndrome
     Dosage: UNK
     Route: 065
  10. DILTIAZEM [Concomitant]
     Active Substance: DILTIAZEM
     Indication: Torsade de pointes
  11. PROPRANOLOL [Concomitant]
     Active Substance: PROPRANOLOL HYDROCHLORIDE
     Indication: Long QT syndrome
     Dosage: UNK
     Route: 065
  12. PROPRANOLOL [Concomitant]
     Active Substance: PROPRANOLOL HYDROCHLORIDE
     Indication: Torsade de pointes

REACTIONS (2)
  - Seizure [Unknown]
  - Off label use [Unknown]
